FAERS Safety Report 8382715-6 (Version None)
Quarter: 2012Q2

REPORT INFORMATION
  Report Type: 
  Country: None (occurrence: None)
  Receive Date: 20120524
  Receipt Date: 20120411
  Transmission Date: 20120825
  Serious: No
  Sender: FDA-Public Use
  Company Number: US-ALLERGAN-1205191US

PATIENT
  Age: 60 Year
  Sex: Female

DRUGS (4)
  1. LASTACAFT [Suspect]
     Indication: BLEPHARITIS
     Dosage: 2 GTT, QD
     Route: 047
     Dates: start: 20120301
  2. LASTACAFT [Suspect]
     Indication: MYCOTIC ALLERGY
  3. LASTACAFT [Suspect]
     Indication: HOUSE DUST ALLERGY
  4. GENTLE LUBRICANT EYE DROP [Concomitant]
     Indication: DRY EYE
     Dosage: UNK
     Route: 047

REACTIONS (3)
  - EYE PAIN [None]
  - OCULAR HYPERAEMIA [None]
  - EYE IRRITATION [None]
